FAERS Safety Report 14080467 (Version 1)
Quarter: 2017Q4

REPORT INFORMATION
  Report Type: Spontaneous
  Country: US (occurrence: US)
  Receive Date: 20171012
  Receipt Date: 20171012
  Transmission Date: 20180321
  Serious: No
  Sender: FDA-Public Use
  Company Number: US-MYLANLABS-2017M1037309

PATIENT
  Age: 46 Year
  Sex: Female

DRUGS (1)
  1. ESTRADIOL TRANSDERMAL SYSTEM [Suspect]
     Active Substance: ESTRADIOL
     Indication: MENOPAUSE
     Dosage: 0.1 MG, QD, CHANGE TW
     Route: 062
     Dates: start: 201702

REACTIONS (2)
  - Drug ineffective [Not Recovered/Not Resolved]
  - Blood oestrogen decreased [Recovered/Resolved]

NARRATIVE: CASE EVENT DATE: 20170615
